FAERS Safety Report 5238932-7 (Version None)
Quarter: 2007Q1

REPORT INFORMATION
  Report Type: 
  Country: None (occurrence: None)
  Receive Date: 20070209
  Receipt Date: 20070130
  Transmission Date: 20070707
  Serious: Yes (Hospitalization)
  Sender: FDA-Public Use
  Company Number: 2006BI019107

PATIENT
  Age: 69 Year
  Sex: Male

DRUGS (23)
  1. AVONEX [Suspect]
     Indication: MULTIPLE SCLEROSIS
     Dosage: 30 UG; QW; IM
     Route: 030
     Dates: start: 20060301
  2. IPROTROPIUM INH [Concomitant]
  3. ALBUTEROL SULATE [Concomitant]
  4. LYRICA [Concomitant]
  5. DEPAKOTE [Concomitant]
  6. ALPRAZOLAM [Concomitant]
  7. DARVOCET [Concomitant]
  8. NAMENDA [Concomitant]
  9. SINGULAIR [Concomitant]
  10. PROTONIX [Concomitant]
  11. POTASSIUM CHLORIDE [Concomitant]
  12. ALPHAGAN [Concomitant]
  13. METAPROLOL [Concomitant]
  14. DOXYCYCLINE [Concomitant]
  15. ASPIRIN [Concomitant]
  16. SINEMET [Concomitant]
  17. LOVENOX [Concomitant]
  18. NEURONTIN [Concomitant]
  19. SEROQUEL [Concomitant]
  20. EXELON [Concomitant]
  21. VESICARE [Concomitant]
  22. SYNTHROID [Concomitant]
  23. EFFEXOR [Concomitant]

REACTIONS (4)
  - IMMUNE SYSTEM DISORDER [None]
  - PNEUMONIA [None]
  - SEPSIS [None]
  - TACHYCARDIA [None]
